FAERS Safety Report 9922861 (Version 1)
Quarter: 2014Q1

REPORT INFORMATION
  Report Type: Spontaneous
  Country: US (occurrence: US)
  Receive Date: 20140225
  Receipt Date: 20140225
  Transmission Date: 20141002
  Serious: No
  Sender: FDA-Public Use
  Company Number: US-ABBVIE-13P-163-1170301-00

PATIENT
  Sex: Male

DRUGS (3)
  1. ANDROGEL [Suspect]
     Indication: BLOOD TESTOSTERONE DECREASED
     Route: 061
     Dates: start: 2011
  2. ANDROGEL [Suspect]
     Dosage: UNKNOWN
     Route: 061
  3. ANDROGEL [Suspect]
     Dosage: 1.5 PUMP ACTUATIONS/DEPRESSIONS
     Route: 061
     Dates: start: 201311

REACTIONS (3)
  - Off label use [Unknown]
  - Blood testosterone increased [Unknown]
  - Blood testosterone decreased [Unknown]
